FAERS Safety Report 5470890-2 (Version None)
Quarter: 2007Q3

REPORT INFORMATION
  Report Type: 
  Country: None (occurrence: None)
  Receive Date: 20070925
  Receipt Date: 20070910
  Transmission Date: 20080115
  Serious: Yes (Hospitalization)
  Sender: FDA-Public Use
  Company Number: B0487266A

PATIENT
  Age: 59 Year
  Sex: Female

DRUGS (7)
  1. LAMIVUDINE [Suspect]
  2. AZATHIOPRINE [Suspect]
     Indication: SECONDARY IMMUNODEFICIENCY
  3. CYCLOSPORINE [Suspect]
     Indication: SECONDARY IMMUNODEFICIENCY
     Dosage: 75 MG, TWICE PER DAY;
  4. MYCOPHENOLATE MOFETTIL [Suspect]
     Indication: SECONDARY IMMUNODEFICIENCY
     Dosage: 500 MG, TWICE PER DAY;
  5. PREDNISONE [Suspect]
     Indication: SECONDARY IMMUNODEFICIENCY
  6. NIFEDIPINE [Concomitant]
  7. ATENOLOL [Concomitant]

REACTIONS (16)
  - ABNORMAL BEHAVIOUR [None]
  - BLOOD AMYLASE INCREASED [None]
  - CONFUSIONAL STATE [None]
  - DEPRESSED LEVEL OF CONSCIOUSNESS [None]
  - DISORIENTATION [None]
  - GRAND MAL CONVULSION [None]
  - HEPATIC FUNCTION ABNORMAL [None]
  - HEPATITIS TOXIC [None]
  - HYPOTONIA [None]
  - IMPAIRED SELF-CARE [None]
  - INSOMNIA [None]
  - MEMORY IMPAIRMENT [None]
  - MUSCULAR WEAKNESS [None]
  - NERVOUSNESS [None]
  - NEUROTOXICITY [None]
  - PROGRESSIVE MULTIFOCAL LEUKOENCEPHALOPATHY [None]
